FAERS Safety Report 9526306 (Version 1)
Quarter: 2013Q3

REPORT INFORMATION
  Report Type: Spontaneous
  Country: US (occurrence: US)
  Receive Date: 20130916
  Receipt Date: 20130916
  Transmission Date: 20140515
  Serious: No
  Sender: FDA-Public Use
  Company Number: US-BAYER-2013-107756

PATIENT
  Age: 59 Year
  Sex: Female

DRUGS (1)
  1. CLIMARA [Suspect]
     Dosage: UNK
     Route: 062

REACTIONS (4)
  - Product adhesion issue [None]
  - Hot flush [None]
  - Urticaria [None]
  - Product quality issue [None]
